FAERS Safety Report 9624395 (Version 1)
Quarter: 2013Q4

REPORT INFORMATION
  Report Type: Spontaneous
  Country: FR (occurrence: FR)
  Receive Date: 20131015
  Receipt Date: 20131015
  Transmission Date: 20140711
  Serious: Yes (Life-Threatening, Hospitalization)
  Sender: FDA-Public Use
  Company Number: FR-GLAXOSMITHKLINE-B0927970A

PATIENT
  Age: 71 Year
  Sex: Female

DRUGS (12)
  1. ARIXTRA [Suspect]
     Indication: THROMBOPHLEBITIS
     Dosage: 7.5MG PER DAY
     Route: 058
     Dates: start: 201303, end: 201308
  2. DIFFU K [Concomitant]
     Route: 048
  3. ALLOPURINOL [Concomitant]
     Dosage: 200MG PER DAY
     Route: 048
  4. TEMESTA [Concomitant]
     Dosage: 1MG AT NIGHT
     Route: 048
  5. ANAFRANIL [Concomitant]
     Dosage: 10MG AT NIGHT
     Route: 048
  6. CORTANCYL [Concomitant]
     Dosage: 15MG PER DAY
  7. TARDYFERON [Concomitant]
     Dosage: 1TAB THREE TIMES PER DAY
     Route: 048
  8. INEXIUM [Concomitant]
     Dosage: 20MG AT NIGHT
  9. LASILIX [Concomitant]
     Dosage: 40MG SEE DOSAGE TEXT
  10. LAROXYL [Concomitant]
     Dosage: 5DROP PER DAY
  11. LOW MOLECULAR WEIGHT HEPARIN [Concomitant]
     Dates: start: 201301
  12. PREVISCAN (FLUINDIONE) [Concomitant]
     Dates: start: 2013, end: 2013

REACTIONS (9)
  - Retroperitoneal haematoma [Recovered/Resolved]
  - Shock haemorrhagic [Recovered/Resolved]
  - Hypotension [Unknown]
  - Tachycardia [Unknown]
  - Melaena [Unknown]
  - Anaemia [Unknown]
  - Back pain [Unknown]
  - Pain in extremity [Unknown]
  - Incorrect drug administration duration [Unknown]
